FAERS Safety Report 8125205-8 (Version None)
Quarter: 2012Q1

REPORT INFORMATION
  Report Type: 
  Country: None (occurrence: None)
  Receive Date: 20120209
  Receipt Date: 20120205
  Transmission Date: 20120608
  Serious: No
  Sender: FDA-Public Use
  Company Number: US-BAYER-2012-012958

PATIENT
  Sex: Female

DRUGS (2)
  1. ALEVE (CAPLET) [Suspect]
     Indication: TOOTHACHE
     Dosage: 2 DF, UNK
     Route: 048
  2. ACETAMINOPHEN [Concomitant]
     Dosage: 10 DF, UNK

REACTIONS (1)
  - ABDOMINAL DISCOMFORT [None]
